FAERS Safety Report 25115445 (Version 4)
Quarter: 2025Q2

REPORT INFORMATION
  Report Type: Spontaneous
  Country: JP (occurrence: JP)
  Receive Date: 20250324
  Receipt Date: 20250423
  Transmission Date: 20250717
  Serious: Yes (Other)
  Sender: PFIZER
  Company Number: JP-ONO-2025JP005062

PATIENT
  Age: 6 Decade
  Sex: Female

DRUGS (6)
  1. BRAFTOVI [Suspect]
     Active Substance: ENCORAFENIB
     Indication: Colorectal cancer
     Route: 048
     Dates: start: 202503, end: 202503
  2. BRAFTOVI [Suspect]
     Active Substance: ENCORAFENIB
     Indication: Colon cancer
     Route: 048
     Dates: start: 202504
  3. MEKTOVI [Suspect]
     Active Substance: BINIMETINIB
     Indication: Colorectal cancer
     Route: 048
     Dates: start: 202503, end: 202503
  4. MEKTOVI [Suspect]
     Active Substance: BINIMETINIB
     Indication: Colon cancer
  5. CETUXIMAB [Concomitant]
     Active Substance: CETUXIMAB
     Indication: Colorectal cancer
     Route: 065
     Dates: start: 202503, end: 202503
  6. CETUXIMAB [Concomitant]
     Active Substance: CETUXIMAB
     Indication: Colon cancer
     Route: 065
     Dates: start: 202504

REACTIONS (3)
  - Macular oedema [Recovered/Resolved]
  - Nausea [Recovered/Resolved]
  - Urticaria [Recovering/Resolving]

NARRATIVE: CASE EVENT DATE: 20250301
